FAERS Safety Report 24048091 (Version 1)
Quarter: 2024Q3

REPORT INFORMATION
  Report Type: Report from Study
  Country: US (occurrence: US)
  Receive Date: 20240703
  Receipt Date: 20240703
  Transmission Date: 20241016
  Serious: Yes (Other)
  Sender: ABBVIE
  Company Number: US-ABBVIE-5821451

PATIENT
  Sex: Female

DRUGS (1)
  1. SKYRIZI [Suspect]
     Active Substance: RISANKIZUMAB-RZAA
     Indication: Psoriasis
     Route: 058
     Dates: start: 20200720

REACTIONS (5)
  - Cataract [Unknown]
  - Eye pain [Unknown]
  - Blindness unilateral [Recovered/Resolved]
  - Ophthalmic vascular thrombosis [Unknown]
  - Ocular procedural complication [Not Recovered/Not Resolved]
